FAERS Safety Report 4335171-9 (Version None)
Quarter: 2004Q2

REPORT INFORMATION
  Report Type: 
  Country: None (occurrence: None)
  Receive Date: 20040408
  Receipt Date: 20030319
  Transmission Date: 20050107
  Serious: Yes (Disabling, Other)
  Sender: FDA-Public Use
  Company Number: US-BRISTOL-MYERS SQUIBB COMPANY-12215810

PATIENT
  Age: 49 Year
  Sex: Male

DRUGS (4)
  1. AMIKIN [Suspect]
     Indication: LYMPHANGITIS
     Route: 042
     Dates: start: 20000326, end: 20000330
  2. AUGMENTIN [Concomitant]
     Route: 042
     Dates: start: 20000326, end: 20000330
  3. AMOXICILLIN AND CLAVULANATE POTASSIUM [Concomitant]
     Route: 048
     Dates: start: 20000101, end: 20000101
  4. NOVALGIN [Concomitant]
     Dates: start: 20000326, end: 20000326

REACTIONS (1)
  - ANOSMIA [None]
